FAERS Safety Report 7717907-X (Version None)
Quarter: 2011Q3

REPORT INFORMATION
  Report Type: 
  Country: None (occurrence: None)
  Receive Date: 20110830
  Receipt Date: 20110819
  Transmission Date: 20111222
  Serious: Yes (Other)
  Sender: FDA-Public Use
  Company Number: US-JNJFOC-20110809803

PATIENT
  Sex: Female
  Weight: 104.33 kg

DRUGS (7)
  1. WELLBUTRIN [Concomitant]
     Indication: ANTIDEPRESSANT THERAPY
     Route: 048
  2. REMICADE [Suspect]
     Indication: PSORIATIC ARTHROPATHY
     Route: 042
     Dates: start: 20110623
  3. PROZAC [Concomitant]
     Indication: ANTIDEPRESSANT THERAPY
     Route: 048
  4. NORTRIPTYLINE HCL [Concomitant]
     Indication: ANTIDEPRESSANT THERAPY
     Dosage: 75 (UNITS UNSPECIFIED)
     Route: 065
  5. REMICADE [Suspect]
     Route: 042
     Dates: start: 20110804
  6. MS CONTIN [Concomitant]
     Indication: PAIN
     Route: 048
  7. REMICADE [Suspect]
     Route: 042
     Dates: start: 20110707

REACTIONS (7)
  - ERYTHEMA [None]
  - HEADACHE [None]
  - CONFUSIONAL STATE [None]
  - APHASIA [None]
  - PAIN IN EXTREMITY [None]
  - FATIGUE [None]
  - PSORIASIS [None]
